FAERS Safety Report 4302620-1 (Version None)
Quarter: 2004Q1

REPORT INFORMATION
  Report Type: 
  Country: None (occurrence: None)
  Receive Date: 20040217
  Receipt Date: 20030512
  Transmission Date: 20041129
  Serious: Yes (Other)
  Sender: FDA-Public Use
  Company Number: 200314511US

PATIENT
  Age: 16 Year
  Sex: Female

DRUGS (1)
  1. ALLEGRA-D [Suspect]
     Dates: start: 20020501

REACTIONS (1)
  - CONVULSION [None]
